FAERS Safety Report 6063920-0 (Version None)
Quarter: 2009Q1

REPORT INFORMATION
  Report Type: 
  Country: None (occurrence: None)
  Receive Date: 20090204
  Receipt Date: 20090122
  Transmission Date: 20090719
  Serious: Yes (Other)
  Sender: FDA-Public Use
  Company Number: PHHY2009BR02628

PATIENT
  Age: 8 Year
  Sex: Female
  Weight: 37 kg

DRUGS (4)
  1. TRILEPTAL [Suspect]
     Indication: CONVULSION
     Dosage: 3.5 ML EVERY 8 HOURS
     Route: 048
     Dates: start: 20081202, end: 20081202
  2. TRILEPTAL [Suspect]
     Dosage: 2 ML, Q8H
     Route: 048
     Dates: start: 20081203, end: 20081203
  3. TRILEPTAL [Suspect]
     Dosage: 1 ML, Q8H
     Route: 048
     Dates: start: 20081204, end: 20081227
  4. FRISIUM [Concomitant]
     Indication: CONVULSION
     Dosage: 10 MG, BID
     Route: 048

REACTIONS (14)
  - ANOREXIA [None]
  - ASTHENOPIA [None]
  - CONSTIPATION [None]
  - CONVULSION [None]
  - FATIGUE [None]
  - FLUID INTAKE REDUCED [None]
  - GAIT DISTURBANCE [None]
  - INCORRECT DOSE ADMINISTERED [None]
  - IRRITABILITY [None]
  - MYDRIASIS [None]
  - POSTICTAL STATE [None]
  - SOMNOLENCE [None]
  - URINARY RETENTION [None]
  - VOMITING [None]
